FAERS Safety Report 10141549 (Version 2)
Quarter: 2014Q2

REPORT INFORMATION
  Report Type: Spontaneous
  Country: FR (occurrence: FR)
  Receive Date: 20140429
  Receipt Date: 20140429
  Transmission Date: 20141212
  Serious: Yes (Life-Threatening, Hospitalization)
  Sender: FDA-Public Use
  Company Number: FR-GLAXOSMITHKLINE-B0275871A

PATIENT
  Age: 25 Year
  Sex: Female

DRUGS (2)
  1. LAMICTAL [Suspect]
     Indication: EPILEPSY
     Route: 048
     Dates: start: 20020415, end: 20020429
  2. DEPAKINE [Concomitant]
     Indication: EPILEPSY

REACTIONS (14)
  - Stevens-Johnson syndrome [Recovered/Resolved]
  - Toxic skin eruption [Recovered/Resolved]
  - Cough [Recovered/Resolved]
  - Conjunctivitis [Recovered/Resolved]
  - Mouth ulceration [Recovered/Resolved]
  - Skin lesion [Recovered/Resolved]
  - Face oedema [Recovered/Resolved]
  - Lymphadenopathy [Recovered/Resolved]
  - Rash maculo-papular [Recovered/Resolved]
  - General physical health deterioration [Recovered/Resolved]
  - Hyperthermia [Recovered/Resolved]
  - Skin exfoliation [Recovered/Resolved]
  - Ill-defined disorder [Recovered/Resolved]
  - Incorrect drug administration rate [Unknown]
